FAERS Safety Report 6626327-0 (Version None)
Quarter: 2010Q1

REPORT INFORMATION
  Report Type: 
  Country: None (occurrence: None)
  Receive Date: 20100310
  Receipt Date: 20100305
  Transmission Date: 20100710
  Serious: Yes (Death)
  Sender: FDA-Public Use
  Company Number: GB-ROXANE LABORATORIES, INC.-2010-RO-00237RO

PATIENT
  Age: 15 Month
  Sex: Male
  Weight: 10 kg

DRUGS (1)
  1. METHADONE HYDROCHLORIDE [Suspect]

REACTIONS (2)
  - HYPOXIA [None]
  - THERAPEUTIC AGENT TOXICITY [None]
